FAERS Safety Report 6805452-5 (Version None)
Quarter: 2010Q2

REPORT INFORMATION
  Report Type: 
  Country: None (occurrence: None)
  Receive Date: 20100628
  Receipt Date: 20071120
  Transmission Date: 20101027
  Serious: No
  Sender: FDA-Public Use
  Company Number: US-PFIZER INC-2007097864

PATIENT
  Sex: Male
  Weight: 15.4 kg

DRUGS (2)
  1. GENOTROPIN [Suspect]
     Indication: SMALL FOR DATES BABY
     Dates: start: 20071120
  2. NO PRODUCT FOUND [Suspect]

REACTIONS (1)
  - INJECTION SITE ERYTHEMA [None]
